FAERS Safety Report 24209214 (Version 1)
Quarter: 2024Q3

REPORT INFORMATION
  Report Type: Spontaneous
  Country: RU (occurrence: None)
  Receive Date: 20240814
  Receipt Date: 20240814
  Transmission Date: 20241017
  Serious: Yes (Hospitalization, Other)
  Sender: ASTRAZENECA
  Company Number: 2024A180924

PATIENT
  Age: 62 Year
  Sex: Male
  Weight: 115 kg

DRUGS (2)
  1. BRILINTA [Suspect]
     Active Substance: TICAGRELOR
     Indication: Acute coronary syndrome
     Dosage: 2 TIMES A DAY FOR 4 DAYS
     Route: 048
     Dates: start: 20240413, end: 20240417
  2. BRILINTA [Suspect]
     Active Substance: TICAGRELOR
     Indication: Percutaneous coronary intervention
     Dosage: 2 TIMES A DAY FOR 4 DAYS
     Route: 048
     Dates: start: 20240413, end: 20240417

REACTIONS (1)
  - Hepatic enzyme increased [Recovering/Resolving]
